FAERS Safety Report 9760264 (Version 1)
Quarter: 2013Q4

REPORT INFORMATION
  Report Type: Spontaneous
  Country: US (occurrence: US)
  Receive Date: 20131216
  Receipt Date: 20131216
  Transmission Date: 20140711
  Serious: No
  Sender: FDA-Public Use
  Company Number: US-GILEAD-2010-0028787

PATIENT
  Age: 69 Year
  Sex: Female
  Weight: 104.5 kg

DRUGS (13)
  1. LETAIRIS [Suspect]
     Indication: PULMONARY ARTERIAL HYPERTENSION
     Route: 048
     Dates: start: 20081226
  2. SINGULAIR [Concomitant]
  3. LASIX [Concomitant]
  4. COUMADIN [Concomitant]
  5. PATANASE SPR [Concomitant]
  6. DILANTIN [Concomitant]
  7. DIOVAN [Concomitant]
  8. DIGOXIN [Concomitant]
  9. GABAPENTIN [Concomitant]
  10. FERROUS SULFATE [Concomitant]
  11. VITAMIN D [Concomitant]
  12. MAXZIDE [Concomitant]
  13. ZETIA [Concomitant]

REACTIONS (1)
  - Local swelling [Recovering/Resolving]
